FAERS Safety Report 11446752 (Version 1)
Quarter: 2015Q3

REPORT INFORMATION
  Report Type: Spontaneous
  Country: US (occurrence: US)
  Receive Date: 20150831
  Receipt Date: 20150831
  Transmission Date: 20151125
  Serious: No
  Sender: FDA-Public Use
  Company Number: US-ELI_LILLY_AND_COMPANY-US200811003032

PATIENT
  Sex: Female

DRUGS (2)
  1. CYMBALTA [Suspect]
     Active Substance: DULOXETINE HYDROCHLORIDE
     Indication: MAJOR DEPRESSION
     Dosage: 60 MG, 2/D
     Dates: start: 2007
  2. ANTI-ANXIETY [Concomitant]
     Active Substance: UNSPECIFIED INGREDIENT
     Indication: ANXIETY

REACTIONS (4)
  - Blood pressure increased [Unknown]
  - Anxiety [Not Recovered/Not Resolved]
  - Nasopharyngitis [Unknown]
  - Insomnia [Unknown]
